FAERS Safety Report 9220446 (Version 1)
Quarter: 2013Q1

REPORT INFORMATION
  Report Type: Spontaneous
  Country: US (occurrence: US)
  Receive Date: 20120831
  Receipt Date: 20120831
  Transmission Date: 20140127
  Serious: No
  Sender: FDA-Public Use
  Company Number: 1000031245

PATIENT
  Age: 68 Year
  Sex: Female

DRUGS (12)
  1. DALIRESP [Suspect]
     Indication: CHRONIC OBSTRUCTIVE PULMONARY DISEASE
     Route: 048
     Dates: start: 20120611
  2. ADVAIR (SERETIDE)(SERETIDE) [Concomitant]
  3. LISINOPRIL (LISINOPRIL)(LISINOPRIL) [Concomitant]
  4. AMLODIPINE (AMLODIPINE)(AMLODIPINE) [Concomitant]
  5. CALCIUM (CALCIUM)(CALCIUM) [Concomitant]
  6. OMEGA-3 (OMEGA-3)(OMEGA-3) [Concomitant]
  7. VITAMIN C (ASCORBIC ACID)(ASCORBIC ACID) [Concomitant]
  8. MELATONIN (MELATONIN)(MELATONIN) [Concomitant]
  9. VITAMIN D (VITAMIN D)(VITAMIN D) [Concomitant]
  10. VITAMIN E (VITAMIN E)(VITAMIN E) [Concomitant]
  11. CO Q10 (UBIDECARENONE)(UBIDECARENONE) [Concomitant]
  12. LUTEIN (LUTEIN)(LUTEIN) [Concomitant]

REACTIONS (4)
  - Ear disorder [None]
  - Feeling abnormal [None]
  - Nausea [None]
  - Balance disorder [None]
